FAERS Safety Report 6132587-5 (Version None)
Quarter: 2009Q1

REPORT INFORMATION
  Report Type: 
  Country: None (occurrence: None)
  Receive Date: 20090324
  Receipt Date: 20090320
  Transmission Date: 20090719
  Serious: Yes (Death)
  Sender: FDA-Public Use
  Company Number: GXKR2009DE00994

PATIENT
  Age: 67 Year
  Sex: Female
  Weight: 85 kg

DRUGS (3)
  1. METRONIDAZOLE [Suspect]
     Indication: ANTIBIOTIC PROPHYLAXIS
     Dosage: 500 MG, BID, INTRAVENOUS
     Route: 042
     Dates: start: 20081121, end: 20081128
  2. CIPROBAY (CIPROFLOXACIN) (CIPROFLOXACIN) [Concomitant]
  3. INSULIN (INSULIN) [Concomitant]

REACTIONS (2)
  - MULTI-ORGAN FAILURE [None]
  - TOXIC EPIDERMAL NECROLYSIS [None]
